FAERS Safety Report 10083975 (Version 2)
Quarter: 2014Q2

REPORT INFORMATION
  Report Type: Report from Study
  Country: JP (occurrence: JP)
  Receive Date: 20140417
  Receipt Date: 20140430
  Transmission Date: 20141212
  Serious: Yes (Hospitalization)
  Sender: FDA-Public Use
  Company Number: JP-ASTRAZENECA-2014SE25901

PATIENT
  Age: 72 Year
  Sex: Female

DRUGS (11)
  1. ZD6474 [Suspect]
     Indication: THYROID CANCER
     Route: 048
     Dates: start: 20131203, end: 20140112
  2. ZD6474 [Suspect]
     Indication: THYROID CANCER
     Route: 048
     Dates: start: 20140115, end: 20140325
  3. ZD6474 [Suspect]
     Indication: THYROID CANCER
     Route: 048
     Dates: start: 20140422
  4. LEVOTHYROXINE SODIUM HYDRATE [Concomitant]
     Indication: HYPOTHYROIDISM
     Route: 048
  5. ALFACALCIDOL [Concomitant]
     Indication: HYPOCALCAEMIA
     Route: 048
  6. ETIZOLAM [Concomitant]
     Indication: ANXIETY
     Route: 048
  7. AMLODIPINE BESILATE [Concomitant]
     Indication: HYPERTENSION
     Route: 048
     Dates: start: 20131217
  8. TELMISARTAN [Concomitant]
     Indication: HYPERTENSION
     Route: 048
     Dates: start: 20131217
  9. HYDROCORTISONE BUTYRATE [Concomitant]
     Indication: RASH
     Route: 003
     Dates: start: 20131217
  10. CLOBETASOL PROPIONATE [Concomitant]
     Indication: RASH
     Route: 003
     Dates: start: 20131208
  11. LOPARAMIDE [Concomitant]
     Indication: DIARRHOEA
     Route: 048
     Dates: start: 20140130

REACTIONS (1)
  - Pleural effusion [Not Recovered/Not Resolved]
